FAERS Safety Report 19686998 (Version 1)
Quarter: 2021Q3

REPORT INFORMATION
  Report Type: Spontaneous
  Country: US (occurrence: US)
  Receive Date: 20210811
  Receipt Date: 20210811
  Transmission Date: 20211014
  Serious: No
  Sender: FDA-Public Use
  Company Number: US-PERRIGO-21US007657

PATIENT
  Age: 9 Year
  Sex: Female
  Weight: 45.35 kg

DRUGS (6)
  1. LORATADINE. [Suspect]
     Active Substance: LORATADINE
     Indication: RHINORRHOEA
  2. DEXMETHYLPHENIDATE [Concomitant]
     Active Substance: DEXMETHYLPHENIDATE HYDROCHLORIDE
     Indication: ATTENTION DEFICIT HYPERACTIVITY DISORDER
     Dosage: 5 MG, IN AFTERNOON
     Route: 065
     Dates: start: 2016
  3. LORATADINE. [Suspect]
     Active Substance: LORATADINE
     Indication: PARANASAL SINUS DISCOMFORT
  4. LORATADINE. [Suspect]
     Active Substance: LORATADINE
     Indication: NASAL CONGESTION
     Dosage: 10 MG, SINGLE
     Route: 048
     Dates: start: 20210603, end: 20210603
  5. LORATADINE. [Suspect]
     Active Substance: LORATADINE
     Indication: SEASONAL ALLERGY
  6. DEXTROAMPHETAMINE                  /00016601/ [Concomitant]
     Active Substance: DEXTROAMPHETAMINE
     Indication: ATTENTION DEFICIT HYPERACTIVITY DISORDER
     Dosage: 10 MG, UNKNOWN
     Route: 065
     Dates: start: 2016

REACTIONS (4)
  - Drug ineffective [Unknown]
  - Off label use [Recovered/Resolved]
  - Eye pruritus [Unknown]
  - Throat irritation [Unknown]

NARRATIVE: CASE EVENT DATE: 20210603
